FAERS Safety Report 9405422 (Version 1)
Quarter: 2013Q3

REPORT INFORMATION
  Report Type: Spontaneous
  Country: GB (occurrence: GB)
  Receive Date: 20130717
  Receipt Date: 20130717
  Transmission Date: 20140515
  Serious: Yes (Other)
  Sender: FDA-Public Use
  Company Number: GB-WATSON-2013-12582

PATIENT
  Age: 20 Year
  Sex: Female

DRUGS (5)
  1. AMOXICILLIN-CLAVULANATE (UNKNOWN) [Suspect]
     Indication: VAGINITIS BACTERIAL
     Dosage: 250/125 MG, UNKNOWN
     Route: 048
     Dates: start: 20130611, end: 20130615
  2. METRONIDAZOLE (UNKNOWN) [Suspect]
     Indication: URINARY TRACT INFECTION
     Dosage: 400 MG, UNKNOWN
     Route: 048
     Dates: start: 20130611, end: 20130615
  3. MICROGYNON                         /00022701/ [Concomitant]
     Indication: PRODUCT USED FOR UNKNOWN INDICATION
     Dosage: UNK, UNKNOWN
     Route: 065
  4. NUROFEN [Concomitant]
     Indication: PRODUCT USED FOR UNKNOWN INDICATION
     Dosage: UNK, UNKNOWN
     Route: 065
  5. TYROZETS [Concomitant]
     Indication: PRODUCT USED FOR UNKNOWN INDICATION
     Dosage: UNK, UNKNOWN
     Route: 065

REACTIONS (5)
  - Vomiting [Unknown]
  - Musculoskeletal stiffness [Unknown]
  - Rash generalised [Unknown]
  - Asthenia [Unknown]
  - Dizziness [Unknown]
